FAERS Safety Report 18842446 (Version 2)
Quarter: 2021Q1

REPORT INFORMATION
  Report Type: Spontaneous
  Country: ES (occurrence: ES)
  Receive Date: 20210204
  Receipt Date: 20210216
  Transmission Date: 20210419
  Serious: Yes (Other)
  Sender: FDA-Public Use
  Company Number: ES-MACLEODS PHARMACEUTICALS US LTD-MAC2021029973

PATIENT

DRUGS (2)
  1. TADALAFIL 20 MG [Suspect]
     Active Substance: TADALAFIL
     Indication: ERECTILE DYSFUNCTION
     Dosage: 20 MILLIGRAM, APPROXIMATELY ONE YEAR
     Route: 048
  2. ENALAPRIL [Concomitant]
     Active Substance: ENALAPRIL
     Indication: HYPERTENSION
     Dosage: UNK
     Route: 065

REACTIONS (1)
  - Retinal detachment [Recovered/Resolved]
